FAERS Safety Report 6102098-1 (Version None)
Quarter: 2009Q1

REPORT INFORMATION
  Report Type: 
  Country: None (occurrence: None)
  Receive Date: 20090304
  Receipt Date: 20081002
  Transmission Date: 20090719
  Serious: Yes (Life-Threatening, Hospitalization)
  Sender: FDA-Public Use
  Company Number: JP-ABBOTT-09P-087-0559481-00

PATIENT
  Age: 31 Year
  Sex: Male

DRUGS (2)
  1. CLARITHROMYCIN [Suspect]
     Indication: BRONCHITIS
     Route: 048
     Dates: start: 20080821, end: 20080826
  2. MUCODYNE [Suspect]
     Indication: BRONCHITIS
     Route: 048
     Dates: start: 20080821, end: 20080826

REACTIONS (1)
  - HEPATITIS ACUTE [None]
